FAERS Safety Report 16251961 (Version 2)
Quarter: 2019Q2

REPORT INFORMATION
  Report Type: Spontaneous
  Country: US (occurrence: US)
  Receive Date: 20190429
  Receipt Date: 20190626
  Transmission Date: 20190711
  Serious: Yes (Other)
  Sender: FDA-Public Use
  Company Number: US-PFIZER INC-2019181196

PATIENT
  Age: 51 Year
  Sex: Female
  Weight: 80.74 kg

DRUGS (1)
  1. XELJANZ [Suspect]
     Active Substance: TOFACITINIB CITRATE
     Indication: RHEUMATOID ARTHRITIS
     Dosage: 5 MG, 2X/DAY (MORNING AND EVENING)
     Route: 048
     Dates: start: 20190406, end: 20190409

REACTIONS (7)
  - Ocular discomfort [Unknown]
  - Cerebrovascular accident [Recovered/Resolved]
  - Head discomfort [Unknown]
  - Headache [Unknown]
  - Blood pressure increased [Unknown]
  - Heart rate increased [Unknown]
  - Dizziness [Unknown]

NARRATIVE: CASE EVENT DATE: 20190409
